FAERS Safety Report 17132086 (Version 1)
Quarter: 2019Q4

REPORT INFORMATION
  Report Type: Spontaneous
  Country: SE (occurrence: SE)
  Receive Date: 20191210
  Receipt Date: 20191210
  Transmission Date: 20200122
  Serious: Yes (Hospitalization, Other)
  Sender: FDA-Public Use
  Company Number: SE-AUROBINDO-AUR-APL-2019-103783

PATIENT
  Age: 28 Year
  Sex: Female
  Weight: 65.5 kg

DRUGS (6)
  1. ZOPICLONE [Suspect]
     Active Substance: ZOPICLONE
     Indication: PRODUCT USED FOR UNKNOWN INDICATION
     Dosage: 30 MILLIGRAM (4 ST ? 7,5 MG)
     Route: 048
     Dates: start: 20181005
  2. PANODIL [Suspect]
     Active Substance: ACETAMINOPHEN
     Indication: PRODUCT USED FOR UNKNOWN INDICATION
     Dosage: 9000 MILLIGRAM (18 ST, 137 MG/KG)
     Route: 048
     Dates: start: 20181005
  3. SERTRALINE [Suspect]
     Active Substance: SERTRALINE HYDROCHLORIDE
     Indication: PRODUCT USED FOR UNKNOWN INDICATION
     Dosage: 400 MILLIGRAM (4 ST ? 100 MG)
     Route: 048
     Dates: start: 20181005
  4. RISPERDAL [Suspect]
     Active Substance: RISPERIDONE
     Indication: PRODUCT USED FOR UNKNOWN INDICATION
     Dosage: 12 MILLIGRAM (6 ST ? 2 MG)
     Route: 048
     Dates: start: 20181005
  5. THERALEN [Suspect]
     Active Substance: TRIMEPRAZINE
     Indication: PRODUCT USED FOR UNKNOWN INDICATION
     Dosage: 10 MILLILITER (40 MG/ML)
     Route: 065
     Dates: start: 20181005
  6. PROPAVAN [Suspect]
     Active Substance: PROPIOMAZINE
     Indication: PRODUCT USED FOR UNKNOWN INDICATION
     Dosage: 300 MILLIGRAM (12 ST ? 25 MG)
     Route: 048
     Dates: start: 20181005

REACTIONS (7)
  - Fatigue [Unknown]
  - Dysarthria [Unknown]
  - Tachycardia [Unknown]
  - Electrocardiogram QT prolonged [Unknown]
  - Intentional overdose [Unknown]
  - Intentional self-injury [Unknown]
  - Akathisia [Unknown]

NARRATIVE: CASE EVENT DATE: 20181005
